FAERS Safety Report 5978573-7 (Version None)
Quarter: 2008Q4

REPORT INFORMATION
  Report Type: 
  Country: None (occurrence: None)
  Receive Date: 20081204
  Receipt Date: 20081126
  Transmission Date: 20090506
  Serious: Yes (Hospitalization)
  Sender: FDA-Public Use
  Company Number: A0759013A

PATIENT
  Age: 64 Year
  Sex: Male

DRUGS (10)
  1. MELPHALAN [Suspect]
     Indication: NON-HODGKIN'S LYMPHOMA
     Route: 042
     Dates: start: 20070516, end: 20070521
  2. VELCADE [Suspect]
     Indication: NON-HODGKIN'S LYMPHOMA
     Route: 042
     Dates: start: 20070511, end: 20070522
  3. RITUXIMAB [Suspect]
     Indication: NON-HODGKIN'S LYMPHOMA
     Route: 042
     Dates: start: 20070426, end: 20070503
  4. CARMUSTINE [Suspect]
     Indication: NON-HODGKIN'S LYMPHOMA
     Route: 042
     Dates: start: 20070516, end: 20070527
  5. ETOPOSIDE [Suspect]
     Indication: NON-HODGKIN'S LYMPHOMA
     Route: 042
     Dates: start: 20070516, end: 20070521
  6. CYTARABINE [Suspect]
     Indication: NON-HODGKIN'S LYMPHOMA
     Route: 042
     Dates: start: 20070516, end: 20070521
  7. NEURONTIN [Concomitant]
  8. TYLENOL W/ CODEINE [Concomitant]
  9. LISINOPRIL [Concomitant]
  10. METOPROLOL TARTRATE [Concomitant]

REACTIONS (3)
  - FEBRILE NEUTROPENIA [None]
  - HERPES ZOSTER [None]
  - NEUROPATHY PERIPHERAL [None]
